FAERS Safety Report 5405870-6 (Version None)
Quarter: 2007Q3

REPORT INFORMATION
  Report Type: 
  Country: None (occurrence: None)
  Receive Date: 20070802
  Receipt Date: 20070725
  Transmission Date: 20080115
  Serious: Yes (Hospitalization)
  Sender: FDA-Public Use
  Company Number: 2006BI005597

PATIENT
  Age: 38 Year
  Sex: Female

DRUGS (1)
  1. AVONEX [Suspect]
     Indication: MULTIPLE SCLEROSIS
     Dosage: 30 UG;QW;IM
     Route: 030
     Dates: start: 20041216

REACTIONS (6)
  - ABDOMINAL DISTENSION [None]
  - ANORECTAL DISORDER [None]
  - ENDOMETRIOSIS [None]
  - GASTRIC DISORDER [None]
  - INTESTINAL OBSTRUCTION [None]
  - RECTAL PROLAPSE [None]
